FAERS Safety Report 8576994-X (Version None)
Quarter: 2012Q3

REPORT INFORMATION
  Report Type: 
  Country: None (occurrence: None)
  Receive Date: 20120807
  Receipt Date: 20120727
  Transmission Date: 20120928
  Serious: Yes (Other)
  Sender: FDA-Public Use
  Company Number: US-BAYER-2012-076762

PATIENT
  Age: 48 Year
  Sex: Female
  Weight: 64.59 kg

DRUGS (3)
  1. ZOLPIDEM [Concomitant]
     Indication: INSOMNIA
     Dosage: 10 MG, PRN
     Dates: start: 20100518
  2. SYMBICORT TU [Concomitant]
     Dosage: UNK
     Dates: start: 20100501
  3. YASMIN [Suspect]
     Dosage: UNK

REACTIONS (1)
  - DEEP VEIN THROMBOSIS [None]
